FAERS Safety Report 6488802-1 (Version None)
Quarter: 2009Q4

REPORT INFORMATION
  Report Type: 
  Country: None (occurrence: None)
  Receive Date: 20091210
  Receipt Date: 20091201
  Transmission Date: 20100525
  Serious: Yes (Hospitalization)
  Sender: FDA-Public Use
  Company Number: ES-PFIZER INC-2009304192

PATIENT
  Age: 89 Year
  Sex: Female

DRUGS (8)
  1. ZITHROMAX [Suspect]
     Indication: LOBAR PNEUMONIA
     Dosage: 500 MG, 1X/DAY
     Route: 048
     Dates: start: 20090715, end: 20090717
  2. OMEPRAZOLE [Concomitant]
     Dosage: 20 MG, 1X/DAY
     Route: 048
  3. HALOPERIDOL [Concomitant]
     Dosage: 6 GTT, 1X/DAY
     Route: 048
     Dates: start: 20090716
  4. ADIRO [Concomitant]
     Dosage: 100 MG, 1X/DAY
     Route: 048
  5. AUGMENTIN '125' [Concomitant]
     Indication: LOBAR PNEUMONIA
     Dosage: UNK
     Route: 048
     Dates: start: 20090715, end: 20090717
  6. COROPRES [Concomitant]
     Dosage: UNK
     Route: 048
     Dates: start: 20090716
  7. IMIDAPRIL HYDROCHLORIDE [Concomitant]
     Dosage: 5 MG, 1X/DAY
     Route: 048
     Dates: start: 20090716
  8. SEGURIL [Concomitant]
     Dosage: UNK MG, 1X/DAY
     Route: 048

REACTIONS (4)
  - BRONCHOSPASM [None]
  - EYELID OEDEMA [None]
  - RASH ERYTHEMATOUS [None]
  - RESPIRATORY DISTRESS [None]
